FAERS Safety Report 6581701-6 (Version None)
Quarter: 2010Q1

REPORT INFORMATION
  Report Type: 
  Country: None (occurrence: None)
  Receive Date: 20100211
  Receipt Date: 20100211
  Transmission Date: 20100710
  Serious: No
  Sender: FDA-Public Use
  Company Number: None

PATIENT
  Age: 45 Year
  Sex: Female
  Weight: 122.9248 kg

DRUGS (2)
  1. FENTANYL [Suspect]
     Indication: OSTEOARTHRITIS
     Dosage: 25 MCG TOPICAL Q72 HOURS
     Route: 061
     Dates: start: 20100101, end: 20100120
  2. FENTANYL [Suspect]
     Indication: PAIN
     Dosage: 25 MCG TOPICAL Q72 HOURS
     Route: 061
     Dates: start: 20100101, end: 20100120

REACTIONS (2)
  - DRUG INEFFECTIVE [None]
  - PRODUCT FORMULATION ISSUE [None]
